FAERS Safety Report 12393542 (Version 3)
Quarter: 2016Q3

REPORT INFORMATION
  Report Type: Report from Study
  Country: MX (occurrence: MX)
  Receive Date: 20160523
  Receipt Date: 20160708
  Transmission Date: 20161109
  Serious: Yes (Death, Hospitalization)
  Sender: FDA-Public Use
  Company Number: PHHY2016MX070146

PATIENT
  Age: 89 Year
  Sex: Female

DRUGS (6)
  1. EXELON PATCH [Suspect]
     Active Substance: RIVASTIGMINE
     Indication: SENILE DEMENTIA
  2. EXELON PATCH [Suspect]
     Active Substance: RIVASTIGMINE
     Indication: CEREBRAL DISORDER
     Dosage: 18 MG / EXELON 10 CM2 PATCH (9.5 MG, QD)
     Route: 062
     Dates: start: 201503, end: 20151223
  3. JANUMET [Concomitant]
     Active Substance: METFORMIN HYDROCHLORIDE\SITAGLIPTIN PHOSPHATE
     Indication: PROPHYLAXIS
     Dosage: 1 DF, BID (IN MORNING AND AT NIGHT), STARTED 4 YEARS AGO
     Route: 065
  4. MICARDIS [Concomitant]
     Active Substance: TELMISARTAN
     Indication: DIZZINESS
     Dosage: 1 DF, QD (AT NIGHT)
     Route: 048
     Dates: end: 201509
  5. BETAHISTINE [Concomitant]
     Active Substance: BETAHISTINE
     Indication: TINNITUS
     Dosage: 24 MG, UNK (STARTED 2 YEARS AGO)
     Route: 065
  6. CHLORTHALIDONE. [Concomitant]
     Active Substance: CHLORTHALIDONE
     Indication: OEDEMA PERIPHERAL
     Dosage: 0.5 DF, QW4 (MONDAY, TUESDAY, WEDNESDAY, FRIDAY)
     Route: 048
     Dates: start: 201506, end: 201512

REACTIONS (7)
  - Respiratory failure [Fatal]
  - Blood glucose increased [Fatal]
  - Respiratory arrest [Fatal]
  - Vaginal infection [Not Recovered/Not Resolved]
  - Product use issue [Unknown]
  - Diabetes mellitus [Fatal]
  - Urosepsis [Fatal]

NARRATIVE: CASE EVENT DATE: 201503
